FAERS Safety Report 7034103-2 (Version None)
Quarter: 2010Q4

REPORT INFORMATION
  Report Type: 
  Country: None (occurrence: None)
  Receive Date: 20101008
  Receipt Date: 20101005
  Transmission Date: 20110411
  Serious: Yes (Life-Threatening, Hospitalization)
  Sender: FDA-Public Use
  Company Number: DK-WYE-G06700210

PATIENT
  Sex: Male

DRUGS (4)
  1. EFFEXOR [Suspect]
     Indication: DEPRESSION
     Route: 048
     Dates: start: 20100726
  2. MAREVAN [Concomitant]
  3. METOPROLOL SUCCINATE [Concomitant]
  4. DIGOXIN [Concomitant]

REACTIONS (2)
  - HYPERTENSIVE CRISIS [None]
  - SUBARACHNOID HAEMORRHAGE [None]
